FAERS Safety Report 13145329 (Version 1)
Quarter: 2017Q1

REPORT INFORMATION
  Report Type: Report from Study
  Country: None (occurrence: MX)
  Receive Date: 20170124
  Receipt Date: 20170124
  Transmission Date: 20170428
  Serious: Yes (Hospitalization, Disabling)
  Sender: FDA-Public Use
  Company Number: MX-ABBVIE-17P-107-1845136-00

PATIENT
  Weight: 55 kg

DRUGS (1)
  1. HUMIRA [Suspect]
     Active Substance: ADALIMUMAB
     Indication: RHEUMATOID ARTHRITIS
     Route: 058

REACTIONS (4)
  - Abasia [Not Recovered/Not Resolved]
  - Femur fracture [Recovering/Resolving]
  - Fall [Recovering/Resolving]
  - Arthritis [Not Recovered/Not Resolved]
